FAERS Safety Report 7889037-8 (Version None)
Quarter: 2011Q4

REPORT INFORMATION
  Report Type: 
  Country: None (occurrence: None)
  Receive Date: 20111103
  Receipt Date: 20110819
  Transmission Date: 20120403
  Serious: Yes (Hospitalization)
  Sender: FDA-Public Use
  Company Number: US-BAUSCH-2011BL005510

PATIENT
  Age: 63 Year
  Sex: Female
  Weight: 83 kg

DRUGS (1)
  1. NAPHAZOLINE HYDROCHLORIDE [Suspect]
     Indication: OCULAR HYPERAEMIA
     Route: 047
     Dates: start: 20110711, end: 20110711

REACTIONS (2)
  - BLOOD PRESSURE INCREASED [None]
  - VIITH NERVE PARALYSIS [None]
